FAERS Safety Report 9707369 (Version 1)
Quarter: 2013Q4

REPORT INFORMATION
  Report Type: Spontaneous
  Country: US (occurrence: US)
  Receive Date: 20131125
  Receipt Date: 20131125
  Transmission Date: 20140711
  Serious: No
  Sender: FDA-Public Use
  Company Number: US-GLAXOSMITHKLINE-A1036314A

PATIENT
  Sex: Female

DRUGS (4)
  1. FLOVENT [Suspect]
     Indication: ASTHMA
     Dosage: 1PUFF PER DAY
     Route: 055
     Dates: start: 201301
  2. ALBUTEROL INHALER [Concomitant]
  3. FLONASE [Concomitant]
  4. EFFEXOR [Concomitant]

REACTIONS (3)
  - Inhalation therapy [Recovered/Resolved]
  - Underdose [Unknown]
  - Product quality issue [Unknown]
